FAERS Safety Report 10588622 (Version 1)
Quarter: 2014Q4

REPORT INFORMATION
  Report Type: Spontaneous
  Country: US (occurrence: US)
  Receive Date: 20141117
  Receipt Date: 20141117
  Transmission Date: 20150529
  Serious: No
  Sender: FDA-Public Use
  Company Number: US-009507513-1409USA003537

PATIENT
  Age: 34 Year
  Sex: Female

DRUGS (2)
  1. ALLERGENIC EXTRACT [Concomitant]
     Active Substance: ALLERGENIC EXTRACTS
     Indication: HYPERSENSITIVITY
     Dosage: UNK, UNKNOWN
  2. CLARITIN-D 24 HOUR [Suspect]
     Active Substance: LORATADINE\PSEUDOEPHEDRINE SULFATE
     Indication: HYPERSENSITIVITY
     Dosage: UNK, UNKNOWN
     Route: 048

REACTIONS (2)
  - Drug effect decreased [Unknown]
  - Drug ineffective [Unknown]
